FAERS Safety Report 15316823 (Version 1)
Quarter: 2018Q3

REPORT INFORMATION
  Report Type: Spontaneous
  Country: US (occurrence: US)
  Receive Date: 20180816
  Receipt Date: 20180816
  Transmission Date: 20181010
  Serious: No
  Sender: FDA-Public Use
  Company Number: None

PATIENT
  Age: 68 Year
  Sex: Female
  Weight: 74.25 kg

DRUGS (2)
  1. SYNTHROID [Suspect]
     Active Substance: LEVOTHYROXINE SODIUM
     Indication: THYROIDECTOMY
     Dosage: ?          OTHER STRENGTH:(0.112 MG);QUANTITY:90 TABLET(S);?
     Route: 048
     Dates: start: 20180807
  2. SYNTHROID [Suspect]
     Active Substance: LEVOTHYROXINE SODIUM
     Indication: THYROIDECTOMY
     Dosage: ?          OTHER STRENGTH:(0.112 MG);QUANTITY:90 TABLET(S);?
     Route: 048
     Dates: start: 20180502, end: 20180807

REACTIONS (2)
  - Agitation [None]
  - Insomnia [None]

NARRATIVE: CASE EVENT DATE: 20180810
